FAERS Safety Report 11221322 (Version 2)
Quarter: 2017Q4

REPORT INFORMATION
  Report Type: Report from Study
  Country: DE (occurrence: DE)
  Receive Date: 20150626
  Receipt Date: 20171120
  Transmission Date: 20180320
  Serious: Yes (Death, Other)
  Sender: FDA-Public Use
  Company Number: DE-ROCHE-1597926

PATIENT

DRUGS (2)
  1. ASPIRIN. [Interacting]
     Active Substance: ASPIRIN
     Indication: ISCHAEMIC STROKE
     Route: 065
  2. ALTEPLASE. [Suspect]
     Active Substance: ALTEPLASE
     Indication: ISCHAEMIC STROKE
     Dosage: WITHIN 6 HRS OF STROKE ONSET
     Route: 042

REACTIONS (8)
  - Haemorrhagic infarction [Fatal]
  - Pulmonary embolism [Fatal]
  - Pneumonia [Fatal]
  - Cerebral haemorrhage [Fatal]
  - Cardiac arrest [Fatal]
  - Petechiae [Fatal]
  - Brain oedema [Fatal]
  - Drug interaction [Fatal]
